FAERS Safety Report 20246183 (Version 2)
Quarter: 2022Q1

REPORT INFORMATION
  Report Type: Report from Study
  Country: JP (occurrence: JP)
  Receive Date: 20211229
  Receipt Date: 20220201
  Transmission Date: 20220423
  Serious: Yes (Death, Other)
  Sender: FDA-Public Use
  Company Number: JP-BRISTOL-MYERS SQUIBB COMPANY-BMS-2021-142544

PATIENT
  Age: 67 Year
  Sex: Female
  Weight: 38.5 kg

DRUGS (6)
  1. NIVOLUMAB [Suspect]
     Active Substance: NIVOLUMAB
     Indication: Non-small cell lung cancer recurrent
     Dosage: 360 MILLIGRAM, Q3WK
     Route: 041
     Dates: start: 20210609, end: 20211021
  2. IPILIMUMAB [Suspect]
     Active Substance: IPILIMUMAB
     Indication: Non-small cell lung cancer recurrent
     Dosage: 38.6 MILLIGRAM, Q6WK
     Route: 041
     Dates: start: 20210609, end: 20210609
  3. IPILIMUMAB [Suspect]
     Active Substance: IPILIMUMAB
     Dosage: 37.4 MILLIGRAM, Q6WK
     Route: 041
  4. IPILIMUMAB [Suspect]
     Active Substance: IPILIMUMAB
     Dosage: 36.9 MILLIGRAM, Q6WK
     Route: 041
     Dates: end: 20211021
  5. CISPLATIN [Suspect]
     Active Substance: CISPLATIN
     Indication: Non-small cell lung cancer recurrent
     Dosage: UNK
     Route: 065
     Dates: start: 20210609, end: 20210706
  6. PEMETREXED DISODIUM [Suspect]
     Active Substance: PEMETREXED DISODIUM
     Indication: Non-small cell lung cancer recurrent
     Dosage: UNK
     Route: 065
     Dates: start: 20210609, end: 20210706

REACTIONS (1)
  - Malignant neoplasm progression [Fatal]
